FAERS Safety Report 7905783-1 (Version None)
Quarter: 2011Q4

REPORT INFORMATION
  Report Type: 
  Country: None (occurrence: None)
  Receive Date: 20111110
  Receipt Date: 20111031
  Transmission Date: 20120403
  Serious: Yes (Death)
  Sender: FDA-Public Use
  Company Number: ZA-JNJFOC-20111100290

PATIENT
  Sex: Male
  Weight: 62.8 kg

DRUGS (5)
  1. SOLU-CORTEF [Concomitant]
     Route: 065
  2. ASACOL [Concomitant]
     Route: 065
  3. PENTASA [Concomitant]
     Route: 065
     Dates: start: 20110628
  4. REVELLEX [Suspect]
     Indication: COLITIS ULCERATIVE
     Route: 042
     Dates: start: 20111003
  5. PREDNISONE [Concomitant]
     Route: 065

REACTIONS (3)
  - ASPERGILLOSIS [None]
  - NEUTROPENIC SEPSIS [None]
  - BRONCHOPNEUMONIA [None]
